FAERS Safety Report 19884167 (Version 1)
Quarter: 2021Q3

REPORT INFORMATION
  Report Type: Spontaneous
  Country: CN (occurrence: CN)
  Receive Date: 20210927
  Receipt Date: 20210927
  Transmission Date: 20211014
  Serious: Yes (Hospitalization)
  Sender: FDA-Public Use
  Company Number: CN-BAXTER-2021BAX024555

PATIENT
  Age: 53 Year
  Sex: Male
  Weight: 69 kg

DRUGS (10)
  1. 0.9% SODIUM CHLORIDE INJECTION [Suspect]
     Active Substance: SODIUM CHLORIDE
     Indication: MEDICATION DILUTION
     Dosage: CYCLOPHOSPHAMIDE 530 MG + NS 40ML Q12H D1?3, HYPER?CVAD?R REGIMEN
     Route: 041
     Dates: start: 20200822, end: 20200824
  2. ENDOXAN [Suspect]
     Active Substance: CYCLOPHOSPHAMIDE
     Indication: BURKITT^S LYMPHOMA
     Dosage: CYCLOPHOSPHAMIDE 530 MG + NS 40ML Q12H D1?3, HYPER?CVAD?R REGIMEN
     Route: 041
     Dates: start: 20200822, end: 20200824
  3. 0.9% SODIUM CHLORIDE INJECTION [Suspect]
     Active Substance: SODIUM CHLORIDE
     Dosage: RITUXIMAB 600 MG + NS 600ML D0; HYPER?CVAD?R REGIMEN
     Route: 041
     Dates: start: 20200821, end: 20200821
  4. RITUXIMAB. [Suspect]
     Active Substance: RITUXIMAB
     Indication: BURKITT^S LYMPHOMA
     Dosage: RITUXIMAB 600 MG + NS 600ML D0; HYPER?CVAD?R REGIMEN
     Route: 041
     Dates: start: 20200821, end: 20200821
  5. 0.9% SODIUM CHLORIDE INJECTION [Suspect]
     Active Substance: SODIUM CHLORIDE
     Dosage: VINDESINE 4 MG + NS 40ML D4; HYPER?CVAD?R REGIMEN
     Route: 041
     Dates: start: 20200825, end: 20200825
  6. XIAIKE [Suspect]
     Active Substance: VINDESINE
     Indication: BURKITT^S LYMPHOMA
     Dosage: VINDESINE 4 MG + NS 40ML D4; HYPER?CVAD?R REGIMEN
     Route: 041
     Dates: start: 20200825, end: 20200825
  7. PHARMORUBICIN [Suspect]
     Active Substance: EPIRUBICIN
     Indication: BURKITT^S LYMPHOMA
     Dosage: EPIRUBICIN 60 MG + NS 40ML D4?5, HYPER?CVAD?R REGIMEN
     Route: 041
     Dates: start: 20200825, end: 20200826
  8. 0.9% SODIUM CHLORIDE INJECTION [Suspect]
     Active Substance: SODIUM CHLORIDE
     Dosage: EPIRUBICIN 60 MG + NS 40ML D4?5, HYPER?CVAD?R REGIMEN
     Route: 041
     Dates: start: 20200825, end: 20200826
  9. 0.9% SODIUM CHLORIDE INJECTION [Suspect]
     Active Substance: SODIUM CHLORIDE
     Dosage: DEXAMETHASONE 40 MG + NS 100ML D1?4; HYPER?CVAD?R REGIMEN
     Route: 041
     Dates: start: 20200822, end: 20200825
  10. DEXAMETHASONE SODIUM PHOSPHATE. [Suspect]
     Active Substance: DEXAMETHASONE SODIUM PHOSPHATE
     Indication: BURKITT^S LYMPHOMA
     Dosage: DEXAMETHASONE 40 MG + NS 100ML D1?4; HYPER?CVAD?R REGIMEN
     Route: 041
     Dates: start: 20200822, end: 20200825

REACTIONS (1)
  - Myelosuppression [Recovering/Resolving]

NARRATIVE: CASE EVENT DATE: 20200831
